FAERS Safety Report 8445336-2 (Version None)
Quarter: 2012Q2

REPORT INFORMATION
  Report Type: 
  Country: None (occurrence: None)
  Receive Date: 20120612
  Receipt Date: 20120612
  Transmission Date: 20120825
  Serious: Yes (Other)
  Sender: FDA-Public Use
  Company Number: None

PATIENT
  Sex: Female

DRUGS (1)
  1. PREDNISONE [Suspect]
     Indication: INNER EAR DISORDER
     Dosage: 20 MG TWICE A DAY PO
     Route: 048
     Dates: start: 20120529, end: 20120606

REACTIONS (11)
  - FREQUENT BOWEL MOVEMENTS [None]
  - WHITE BLOOD CELL COUNT INCREASED [None]
  - INSOMNIA [None]
  - DYSURIA [None]
  - BLOOD GLUCOSE INCREASED [None]
  - ASTHENIA [None]
  - ABDOMINAL PAIN UPPER [None]
  - HAEMOGLOBIN INCREASED [None]
  - FATIGUE [None]
  - VISION BLURRED [None]
  - IMPAIRED DRIVING ABILITY [None]
